FAERS Safety Report 24910920 (Version 1)
Quarter: 2025Q1

REPORT INFORMATION
  Report Type: Spontaneous
  Country: US (occurrence: None)
  Receive Date: 20250130
  Receipt Date: 20250130
  Transmission Date: 20250409
  Serious: Yes (Hospitalization)
  Sender: FDA-CTU
  Company Number: None

PATIENT
  Age: 48 Year
  Sex: Female
  Weight: 81.9 kg

DRUGS (1)
  1. TESTOSTERONE\TRIAMCINOLONE ACETONIDE [Suspect]
     Active Substance: TESTOSTERONE\TRIAMCINOLONE ACETONIDE
     Indication: Menopausal symptoms
     Route: 058
     Dates: start: 20250120

REACTIONS (3)
  - Implant site abscess [None]
  - Implant site cellulitis [None]
  - Skin implant removal [None]

NARRATIVE: CASE EVENT DATE: 20250126
